FAERS Safety Report 5169275-8 (Version None)
Quarter: 2006Q4

REPORT INFORMATION
  Report Type: 
  Country: None (occurrence: None)
  Receive Date: 20061127
  Receipt Date: 20061119
  Transmission Date: 20070319
  Serious: Yes (Hospitalization)
  Sender: FDA-Public Use
  Company Number: DE-2006-035930

PATIENT
  Age: 42 Year
  Sex: 0

DRUGS (1)
  1. BETAFERON 250?G, 500 ?G AND COPAXONE (BETAFERON (SH Y 579E))INJECTION, [Suspect]
     Indication: RELAPSING-REMITTING MULTIPLE SCLEROSIS
     Dosage: 8 OR 16 MIU, EVERY 2D, SUBCUTANEOUS
     Route: 058
     Dates: start: 20040101

REACTIONS (3)
  - DEAFNESS NEUROSENSORY [None]
  - DEAFNESS UNILATERAL [None]
  - STRESS [None]
